FAERS Safety Report 5945599-9 (Version None)
Quarter: 2008Q4

REPORT INFORMATION
  Report Type: 
  Country: None (occurrence: None)
  Receive Date: 20081107
  Receipt Date: 20081028
  Transmission Date: 20090506
  Serious: Yes (Hospitalization)
  Sender: FDA-Public Use
  Company Number: DE-PFIZER INC-2008091321

PATIENT
  Age: 83 Year
  Sex: Female

DRUGS (12)
  1. ZELDOX (CAPSULES) [Interacting]
     Dosage: DAILY DOSE:20MG
     Route: 048
     Dates: start: 20051222
  2. VENLAFAXINE HCL [Suspect]
     Indication: DEPRESSION
     Dosage: DAILY DOSE:150MG
     Route: 048
     Dates: start: 20051209, end: 20051227
  3. CIPRALEX [Interacting]
     Indication: DEPRESSION
     Dosage: DAILY DOSE:20MG
  4. REMERGIL [Interacting]
     Indication: DEPRESSION
     Dosage: DAILY DOSE:15MG
  5. QUILONORM [Concomitant]
     Dates: end: 20051228
  6. NOVODIGAL [Concomitant]
  7. ENALAPRIL MALEATE [Concomitant]
  8. FURORESE [Concomitant]
  9. ARELIX ^CASSELLA^ [Concomitant]
  10. KALINOR [Concomitant]
  11. GODAMED [Concomitant]
  12. CREON [Concomitant]

REACTIONS (3)
  - DELIRIUM [None]
  - DRUG INTERACTION [None]
  - SOMNOLENCE [None]
